FAERS Safety Report 9240881 (Version 1)
Quarter: 2013Q2

REPORT INFORMATION
  Report Type: Report from Study
  Country: RO (occurrence: RO)
  Receive Date: 20130418
  Receipt Date: 20130418
  Transmission Date: 20140414
  Serious: Yes (Death)
  Sender: FDA-Public Use
  Company Number: PHHY2013RO037517

PATIENT
  Age: 63 Year
  Sex: Female
  Weight: 65 kg

DRUGS (1)
  1. ZOLEDRONATE [Suspect]
     Dosage: 5 MG
     Route: 042
     Dates: start: 20120625, end: 20121105

REACTIONS (1)
  - Death [Fatal]
